FAERS Safety Report 10677203 (Version 1)
Quarter: 2014Q4

REPORT INFORMATION
  Report Type: Spontaneous
  Country: DE (occurrence: DE)
  Receive Date: 20141226
  Receipt Date: 20141226
  Transmission Date: 20150529
  Serious: Yes (Hospitalization)
  Sender: FDA-Public Use
  Company Number: DE-SA-2014SA174931

PATIENT
  Sex: Male

DRUGS (17)
  1. CLOPIDOGREL BISULFATE. [Suspect]
     Active Substance: CLOPIDOGREL BISULFATE
     Indication: PROPHYLAXIS
     Route: 048
  2. CO-DIOVAN [Concomitant]
     Active Substance: HYDROCHLOROTHIAZIDE\VALSARTAN
     Indication: HYPERTENSION
     Dosage: 160/12,5MG
     Route: 048
  3. VITAMIN B COMPLEX [Concomitant]
     Active Substance: CYANOCOBALAMIN\DEXPANTHENOL\NIACINAMIDE\PYRIDOXINE HYDROCHLORIDE\RIBOFLAVIN 5^-PHOSPHATE SODIUM\THIAMINE HYDROCHLORIDE\VITAMIN B COMPLEX
     Indication: PROPHYLAXIS
     Route: 048
     Dates: start: 20140730
  4. ATORVASTATIN [Concomitant]
     Active Substance: ATORVASTATIN
     Route: 048
  5. DECORTIN-H [Concomitant]
     Active Substance: PREDNISOLONE HEMISUCCINATE
     Indication: FACIAL PARESIS
     Route: 048
     Dates: start: 20141013, end: 20141016
  6. DOXYCYCLINE. [Concomitant]
     Active Substance: DOXYCYCLINE
     Indication: FACIAL PARESIS
     Route: 048
     Dates: start: 20141013, end: 20141030
  7. DECORTIN-H [Concomitant]
     Active Substance: PREDNISOLONE HEMISUCCINATE
     Indication: FACIAL PARESIS
     Route: 048
     Dates: start: 20141017, end: 20141018
  8. DECORTIN-H [Concomitant]
     Active Substance: PREDNISOLONE HEMISUCCINATE
     Indication: FACIAL PARESIS
     Route: 048
     Dates: start: 20141019, end: 20141020
  9. ASPIRIN. [Concomitant]
     Active Substance: ASPIRIN
     Indication: PROPHYLAXIS
     Route: 048
  10. DECORTIN-H [Concomitant]
     Active Substance: PREDNISOLONE HEMISUCCINATE
     Indication: FACIAL PARESIS
     Route: 048
     Dates: start: 20141025, end: 20141026
  11. DILTAHEXAL [Concomitant]
     Indication: HYPERTENSION
     Dosage: 60MG
     Route: 048
  12. NOVORAPID [Concomitant]
     Active Substance: INSULIN ASPART
     Route: 058
  13. NOVOMIX 30 [Concomitant]
     Active Substance: INSULIN ASPART
     Route: 058
  14. JODID [Concomitant]
     Active Substance: IODINE
     Indication: GOITRE
     Route: 048
  15. DECORTIN-H [Concomitant]
     Active Substance: PREDNISOLONE HEMISUCCINATE
     Indication: FACIAL PARESIS
     Route: 048
     Dates: start: 20141021, end: 20141022
  16. PANTOPRAZOLE [Concomitant]
     Active Substance: PANTOPRAZOLE SODIUM
     Indication: PROPHYLAXIS
     Dosage: 40 MG
     Route: 048
  17. DECORTIN-H [Concomitant]
     Active Substance: PREDNISOLONE HEMISUCCINATE
     Indication: FACIAL PARESIS
     Route: 048
     Dates: start: 20141023, end: 20141024

REACTIONS (1)
  - Facial paresis [Not Recovered/Not Resolved]

NARRATIVE: CASE EVENT DATE: 20131013
